FAERS Safety Report 9404914 (Version 1)
Quarter: 2013Q3

REPORT INFORMATION
  Report Type: Spontaneous
  Country: US (occurrence: US)
  Receive Date: 20130717
  Receipt Date: 20130717
  Transmission Date: 20140515
  Serious: Yes (Other)
  Sender: FDA-Public Use
  Company Number: US-BRISTOL-MYERS SQUIBB COMPANY-18953935

PATIENT
  Age: 58 Year
  Sex: Female
  Weight: 86.17 kg

DRUGS (5)
  1. YERVOY [Suspect]
     Indication: MALIGNANT MELANOMA
     Dates: start: 20130517
  2. CARBOPLATIN [Suspect]
  3. NEXIUM [Concomitant]
  4. COLACE [Concomitant]
     Indication: IRRITABLE BOWEL SYNDROME
  5. VITAMIN B6 [Concomitant]

REACTIONS (3)
  - Malignant neoplasm progression [Unknown]
  - Diarrhoea [Unknown]
  - Weight fluctuation [Unknown]
